FAERS Safety Report 13655186 (Version 1)
Quarter: 2017Q2

REPORT INFORMATION
  Report Type: Spontaneous
  Country: US (occurrence: US)
  Receive Date: 20170614
  Receipt Date: 20170614
  Transmission Date: 20170830
  Serious: No
  Sender: FDA-Public Use
  Company Number: None

PATIENT
  Age: 54 Year
  Sex: Male

DRUGS (1)
  1. STIVARGA [Suspect]
     Active Substance: REGORAFENIB
     Indication: RECTOSIGMOID CANCER
     Dosage: 160 MG DAILY DAYS 1-21 OF 28 DAY CYCLE PO
     Route: 048
     Dates: start: 20170523, end: 20170531

REACTIONS (6)
  - Stomatitis [None]
  - Disease progression [None]
  - Chest pain [None]
  - Contusion [None]
  - Dyspnoea [None]
  - Therapy cessation [None]

NARRATIVE: CASE EVENT DATE: 20170523
